FAERS Safety Report 7459385-4 (Version None)
Quarter: 2011Q2

REPORT INFORMATION
  Report Type: 
  Country: None (occurrence: None)
  Receive Date: 20110505
  Receipt Date: 20110502
  Transmission Date: 20111010
  Serious: Yes (Hospitalization, Other)
  Sender: FDA-Public Use
  Company Number: US-ABBOTT-11P-163-0704041-00

PATIENT
  Sex: Female
  Weight: 72.186 kg

DRUGS (4)
  1. LIPITOR [Concomitant]
     Indication: BLOOD CHOLESTEROL INCREASED
  2. HUMIRA [Suspect]
     Dates: start: 20110301
  3. IMODIUM [Suspect]
     Indication: DIARRHOEA
     Route: 048
     Dates: start: 20110101
  4. HUMIRA [Suspect]
     Indication: RHEUMATOID ARTHRITIS
     Route: 058
     Dates: start: 20030101, end: 20110101

REACTIONS (16)
  - DYSPNOEA [None]
  - PNEUMONIA [None]
  - INTERSTITIAL LUNG DISEASE [None]
  - INJECTION SITE PAIN [None]
  - JOINT STIFFNESS [None]
  - PULMONARY OEDEMA [None]
  - DEHYDRATION [None]
  - DYSSTASIA [None]
  - HIP ARTHROPLASTY [None]
  - PULMONARY FIBROSIS [None]
  - FATIGUE [None]
  - MOBILITY DECREASED [None]
  - AVIAN INFLUENZA [None]
  - DRUG INEFFECTIVE [None]
  - ASTHENIA [None]
  - DIARRHOEA [None]
